FAERS Safety Report 10508419 (Version 2)
Quarter: 2014Q4

REPORT INFORMATION
  Report Type: Spontaneous
  Country: AU (occurrence: AU)
  Receive Date: 20141009
  Receipt Date: 20141021
  Transmission Date: 20150528
  Serious: Yes (Hospitalization, Other)
  Sender: FDA-Public Use
  Company Number: AU-PFIZER INC-2014273574

PATIENT
  Age: 44 Year
  Sex: Male

DRUGS (6)
  1. IBUPROFEN. [Suspect]
     Active Substance: IBUPROFEN
     Indication: PAIN
     Dosage: AS REQUIRED
  2. IBUPROFEN. [Suspect]
     Active Substance: IBUPROFEN
     Dosage: SIX TO EIGHT IBUPROFEN 400 MG TABLETS (IN PREVIOUS 24 HOURS)
  3. MULTIVITAMINS [Concomitant]
     Active Substance: VITAMINS
     Dosage: UNK, OVER A YEAR
  4. ROSUVASTATIN [Concomitant]
     Active Substance: ROSUVASTATIN
     Dosage: 10 MG, 1X/DAY (AT NIGHT) (OVER SIX MONTHS)
  5. ASCORBIC ACID. [Concomitant]
     Active Substance: ASCORBIC ACID
     Dosage: UNK
  6. FISH OIL [Concomitant]
     Active Substance: FISH OIL
     Dosage: UNK

REACTIONS (2)
  - Overdose [Recovered/Resolved]
  - Neutropenia [Recovered/Resolved]
